FAERS Safety Report 5960971-9 (Version None)
Quarter: 2008Q4

REPORT INFORMATION
  Report Type: 
  Country: None (occurrence: None)
  Receive Date: 20081121
  Receipt Date: 20081119
  Transmission Date: 20090506
  Serious: Yes (Other)
  Sender: FDA-Public Use
  Company Number: FR-BRISTOL-MYERS SQUIBB COMPANY-14380307

PATIENT
  Age: 79 Year
  Sex: Female
  Weight: 48 kg

DRUGS (2)
  1. TAXOL [Suspect]
     Indication: BLADDER CANCER
     Dosage: RECEIVED 3 COURSES ON 25SEP08,03OCT08,10OCT08 AND 17OCT08
     Route: 042
     Dates: start: 20080918
  2. KARDEGIC [Concomitant]

REACTIONS (2)
  - HEMIPARESIS [None]
  - TRANSIENT ISCHAEMIC ATTACK [None]
